FAERS Safety Report 7813316-3 (Version None)
Quarter: 2011Q4

REPORT INFORMATION
  Report Type: 
  Country: None (occurrence: None)
  Receive Date: 20111013
  Receipt Date: 20111008
  Transmission Date: 20120403
  Serious: Yes (Congenital Anomaly)
  Sender: FDA-Public Use
  Company Number: US-AMGEN-KDC421882

PATIENT
  Sex: Female

DRUGS (14)
  1. MULTI-VITAMINS [Concomitant]
     Dosage: UNK UNK, QD
     Route: 064
     Dates: start: 20100128, end: 20101104
  2. IRON [Concomitant]
     Dosage: 65 MG, QD
     Route: 064
     Dates: start: 20100403, end: 20100516
  3. TUMS ANTACID [Concomitant]
     Indication: DYSPEPSIA
     Dosage: UNK UNK, QD
     Route: 064
     Dates: start: 20100311, end: 20101104
  4. ETANERCEPT [Suspect]
     Dosage: 50 MG, QWK
     Route: 064
     Dates: start: 20100128, end: 20100226
  5. TUMS ANTACID [Concomitant]
     Indication: MINERAL SUPPLEMENTATION
  6. TYLENOL-500 [Concomitant]
     Indication: HEADACHE
     Dosage: UNK
     Route: 064
     Dates: start: 20100128, end: 20100731
  7. FLUTICASONE PROPIONATE [Concomitant]
     Indication: SEASONAL ALLERGY
     Dosage: UNK UNK, QD
     Route: 064
     Dates: start: 20100128, end: 20101104
  8. DAYQUIL [Concomitant]
     Indication: NASOPHARYNGITIS
     Dosage: UNK UNK, QD
     Route: 064
     Dates: start: 20100215, end: 20100527
  9. NYQUIL [Concomitant]
     Indication: NASOPHARYNGITIS
     Dosage: UNK UNK, QD
     Route: 064
     Dates: start: 20100215, end: 20100227
  10. TYLENOL-500 [Concomitant]
     Indication: PAIN
  11. ETANERCEPT [Suspect]
     Dosage: 50 MG, QWK
     Route: 064
     Dates: start: 20100128, end: 20100226
  12. FOLIC ACID [Concomitant]
     Dosage: UNK UNK, QD
     Route: 064
     Dates: start: 20100329, end: 20101104
  13. OMEGA-3 TRIGLYCERIDES [Concomitant]
     Dosage: UNK UNK, 3 TIMES/WK
     Route: 064
     Dates: start: 20100312, end: 20100730
  14. SULFASALAZINE [Concomitant]
     Dosage: 1000 MG, QD
     Route: 064
     Dates: start: 20100128, end: 20100501

REACTIONS (1)
  - TRISOMY 13 [None]
